FAERS Safety Report 24125044 (Version 1)
Quarter: 2024Q3

REPORT INFORMATION
  Report Type: Other
  Country: GB (occurrence: GB)
  Receive Date: 20240723
  Receipt Date: 20240723
  Transmission Date: 20241016
  Serious: Yes (Other)
  Sender: GLENMARK
  Company Number: GB-MHRA-TPP32770833C2677317YC1720440010522

PATIENT

DRUGS (4)
  1. MONTELUKAST SODIUM [Suspect]
     Active Substance: MONTELUKAST SODIUM
     Indication: Ill-defined disorder
     Dosage: 5 MILLIGRAM, QD (TAKE ONE TABLET AT NIGHT)
     Route: 065
     Dates: start: 20240429, end: 20240527
  2. BECLOMETHASONE DIPROPIONATE [Concomitant]
     Active Substance: BECLOMETHASONE DIPROPIONATE
     Indication: Ill-defined disorder
     Dosage: 1 DOSAGE FORM  [BECLOMETASONE) INHALE ONE DOSE REGULARLY TWICE...BID
     Dates: start: 20230612, end: 20240702
  3. ALBUTEROL [Concomitant]
     Active Substance: ALBUTEROL
     Indication: Ill-defined disorder
     Dosage: UNK [(SALBUTAMOL 100MCG/DOSE CFC FREE LOW CARBON INH...]
     Route: 065
     Dates: start: 20230612
  4. SOPROBEC [Concomitant]
     Indication: Ill-defined disorder
     Dosage: UNK [(BECLOMETASONE-CLENIL EQUIVALENT) INHALE ONE DO...]
     Dates: start: 20240702

REACTIONS (2)
  - Personality change [Recovered/Resolved]
  - Insomnia [Recovered/Resolved]
